FAERS Safety Report 8918594 (Version 2)
Quarter: 2012Q4

REPORT INFORMATION
  Report Type: 
  Country: GB (occurrence: GB)
  Receive Date: 20121120
  Receipt Date: 20121128
  Transmission Date: 20130627
  Serious: Yes (Hospitalization, Other)
  Sender: FDA-Public Use
  Company Number: GB-GILEAD-2012-0064867

PATIENT
  Age: 53 Year
  Sex: Female

DRUGS (10)
  1. EVIPLERA [Suspect]
     Indication: HIV INFECTION
     Dosage: 225 mg, UNK
     Route: 048
  2. MIRTAZAPINE [Suspect]
     Indication: DEPRESSION
     Dosage: 15 mg, UNK
     Route: 048
     Dates: start: 20121101, end: 20121112
  3. TELAPREVIR [Concomitant]
     Indication: HEPATITIS C
     Dosage: 2250 mg, UNK
     Route: 048
     Dates: start: 20121009
  4. PEGYLATED INTERFERON ALFA-2A [Concomitant]
     Indication: HEPATITIS C
     Dosage: 180 ?g, UNK
     Route: 058
     Dates: start: 20120903
  5. RIBAVIRIN [Concomitant]
     Indication: HEPATITIS C
     Dosage: 1000 mg, UNK
     Route: 048
     Dates: start: 20120903
  6. ZOLPIDEM [Concomitant]
     Indication: INSOMNIA
     Dosage: 10 mg, UNK
     Route: 048
     Dates: start: 20121101
  7. SANDO K                            /00209301/ [Concomitant]
     Indication: BLOOD POTASSIUM DECREASED
     Dosage: 1 DF, TID
     Route: 048
     Dates: start: 20121106
  8. METOCLOPRAMIDE [Concomitant]
     Indication: NAUSEA
     Dosage: 10 mg, UNK
     Route: 048
     Dates: start: 20121008
  9. RANTIDINE [Concomitant]
     Indication: PRODUCT USED FOR UNKNOWN INDICATION
  10. CYCLIZINE [Concomitant]
     Indication: PRODUCT USED FOR UNKNOWN INDICATION

REACTIONS (5)
  - Hallucination [Recovered/Resolved]
  - Confusional state [Recovered/Resolved]
  - Disorientation [Recovered/Resolved]
  - Abnormal dreams [Recovered/Resolved]
  - Vomiting [Recovered/Resolved]
